FAERS Safety Report 9678664 (Version 2)
Quarter: 2013Q4

REPORT INFORMATION
  Report Type: Spontaneous
  Country: BR (occurrence: BR)
  Receive Date: 20131108
  Receipt Date: 20131108
  Transmission Date: 20140711
  Serious: Yes (Death, Other)
  Sender: FDA-Public Use
  Company Number: BR-MERCK-1307BRA012831

PATIENT
  Age: 63 Year
  Sex: Male
  Weight: 60 kg

DRUGS (8)
  1. VICTRELIS [Suspect]
     Indication: HEPATITIS C
     Dosage: 800 MG, TID
     Route: 048
     Dates: start: 201305
  2. PEG-INTRON [Suspect]
     Indication: HEPATITIS C
     Dosage: 80 MICROGRAM, QW
     Route: 058
     Dates: start: 20130305
  3. RIBAVIRIN (NON MERCK) [Concomitant]
     Indication: HEPATITIS C
     Dosage: 250 MG, UNK
     Dates: start: 2009, end: 2011
  4. RIBAVIRIN (NON MERCK) [Concomitant]
     Dosage: 500 MG, BID
     Route: 048
     Dates: start: 20130305
  5. INTERFERON (UNSPECIFIED) [Concomitant]
     Indication: HEPATITIS C
     Dosage: UNK
     Dates: start: 2009, end: 2011
  6. VITAMIN B COMPLEX [Concomitant]
     Indication: PAIN
     Dosage: UNK
     Dates: start: 2009
  7. FOLIC ACID [Concomitant]
     Indication: MALAISE
     Dosage: 5 MG, UNK
     Dates: start: 2009
  8. OMEPRAZOLE [Concomitant]
     Indication: GASTRIC ULCER
     Dosage: 20 MG, UNK
     Dates: start: 2009

REACTIONS (11)
  - Myocardial infarction [Fatal]
  - Thinking abnormal [Not Recovered/Not Resolved]
  - Abasia [Unknown]
  - Pain [Not Recovered/Not Resolved]
  - Back pain [Recovered/Resolved]
  - Headache [Recovering/Resolving]
  - Fatigue [Not Recovered/Not Resolved]
  - Asthenia [Not Recovered/Not Resolved]
  - Arthralgia [Not Recovered/Not Resolved]
  - Vomiting [Recovered/Resolved]
  - Drug administration error [Unknown]
